FAERS Safety Report 9457424 (Version 1)
Quarter: 2013Q3

REPORT INFORMATION
  Report Type: Spontaneous
  Country: US (occurrence: None)
  Receive Date: 20130812
  Receipt Date: 20130812
  Transmission Date: 20140515
  Serious: Yes (Disabling)
  Sender: FDA-Public Use
  Company Number: None

PATIENT
  Age: 33 Year
  Sex: Female
  Weight: 79.38 kg

DRUGS (2)
  1. LYRICA [Suspect]
     Indication: FIBROMYALGIA
     Route: 048
     Dates: start: 20081031, end: 20111031
  2. LYRICA [Suspect]
     Indication: NEURALGIA
     Route: 048
     Dates: start: 20081031, end: 20111031

REACTIONS (8)
  - Weight increased [None]
  - Fatigue [None]
  - Dysarthria [None]
  - Oedema [None]
  - Oedema peripheral [None]
  - Nausea [None]
  - Headache [None]
  - Therapy cessation [None]
